FAERS Safety Report 6846656-5 (Version None)
Quarter: 2010Q3

REPORT INFORMATION
  Report Type: 
  Country: None (occurrence: None)
  Receive Date: 20100715
  Receipt Date: 20070920
  Transmission Date: 20110219
  Serious: No
  Sender: FDA-Public Use
  Company Number: US-PFIZER INC-2007079159

PATIENT
  Sex: Male
  Weight: 89.09 kg

DRUGS (4)
  1. CHANTIX [Suspect]
     Indication: SMOKING CESSATION THERAPY
     Dates: start: 20070701
  2. DEPAKOTE [Concomitant]
     Indication: CONVULSION
  3. CARDIOVASCULAR SYSTEM DRUGS [Concomitant]
     Indication: HYPERTENSION
  4. CHOLESTEROL- AND TRIGLYCERIDE REDUCERS [Concomitant]
     Indication: BLOOD CHOLESTEROL INCREASED

REACTIONS (3)
  - ABDOMINAL DISTENSION [None]
  - ABNORMAL DREAMS [None]
  - NIGHTMARE [None]
